FAERS Safety Report 7450982-9 (Version None)
Quarter: 2011Q2

REPORT INFORMATION
  Report Type: 
  Country: None (occurrence: None)
  Receive Date: 20110502
  Receipt Date: 20110428
  Transmission Date: 20111010
  Serious: Yes (Hospitalization, Other)
  Sender: FDA-Public Use
  Company Number: DE-ROCHE-765172

PATIENT
  Sex: Male
  Weight: 80 kg

DRUGS (6)
  1. PREDNISOLONE [Suspect]
     Indication: RHEUMATOID ARTHRITIS
     Route: 048
     Dates: start: 20090601
  2. ARAVA [Concomitant]
     Indication: RHEUMATOID ARTHRITIS
     Route: 048
     Dates: start: 20100101
  3. ROACTEMRA [Suspect]
     Indication: RHEUMATOID ARTHRITIS
     Dosage: 2 ADMINISTRATIONS
     Route: 042
     Dates: start: 20101203, end: 20110125
  4. ANALGETICA [Concomitant]
     Indication: RHEUMATOID ARTHRITIS
  5. IBUPROFEN [Concomitant]
     Indication: RHEUMATOID ARTHRITIS
  6. ISOZID [Concomitant]
     Indication: PROPHYLAXIS
     Dates: start: 20101120, end: 20110301

REACTIONS (2)
  - LUNG ABSCESS [None]
  - TUBERCULOSIS [None]
